FAERS Safety Report 14718748 (Version 2)
Quarter: 2018Q2

REPORT INFORMATION
  Report Type: Report from Study
  Country: BR (occurrence: BR)
  Receive Date: 20180405
  Receipt Date: 20180416
  Transmission Date: 20180711
  Serious: Yes (Other)
  Sender: FDA-Public Use
  Company Number: BR-ROCHE-2096712

PATIENT
  Sex: Female

DRUGS (4)
  1. KADCYLA [Suspect]
     Active Substance: ADO-TRASTUZUMAB EMTANSINE
     Indication: HER-2 POSITIVE BREAST CANCER
     Dosage: SHE RECEIVED 9 CYCLES, LOAD AND SUBSEQUENT DOSE OF 3.6 MG/KG.
     Route: 065
     Dates: start: 20150101, end: 20150630
  2. PERJETA [Suspect]
     Active Substance: PERTUZUMAB
     Indication: HER-2 POSITIVE BREAST CANCER
     Dosage: 9 CYCLES, LOAD AND SUBSEQUENT DOSE OF 840 MG AND 420 MG.
     Route: 065
     Dates: start: 20150101, end: 20150628
  3. TAXOTERE [Suspect]
     Active Substance: DOCETAXEL
     Indication: HER-2 POSITIVE BREAST CANCER
     Route: 065
     Dates: start: 20150101, end: 20150628
  4. HERCEPTIN [Suspect]
     Active Substance: TRASTUZUMAB
     Indication: HER-2 POSITIVE BREAST CANCER
     Dosage: LOAD AND SUBSEQUENT DOSES OF 8 MG/KG AND 6 MG/KG.
     Route: 065
     Dates: start: 20150101, end: 20150628

REACTIONS (2)
  - Disease progression [Unknown]
  - Drug ineffective [Unknown]
